FAERS Safety Report 9192050 (Version 1)
Quarter: 2013Q1

REPORT INFORMATION
  Report Type: Spontaneous
  Country: US (occurrence: None)
  Receive Date: 20130326
  Receipt Date: 20130326
  Transmission Date: 20140127
  Serious: No
  Sender: FDA-Public Use
  Company Number: None

PATIENT
  Age: 74 Year
  Sex: Female

DRUGS (1)
  1. ENBREL 50MG PFS AMGEN [Suspect]
     Indication: RHEUMATOID ARTHRITIS
     Dates: start: 20130103

REACTIONS (2)
  - Night sweats [None]
  - Psoriasis [None]
